FAERS Safety Report 4712321-3 (Version None)
Quarter: 2005Q3

REPORT INFORMATION
  Report Type: 
  Country: None (occurrence: None)
  Receive Date: 20050711
  Receipt Date: 20050627
  Transmission Date: 20060218
  Serious: Yes (Other)
  Sender: FDA-Public Use
  Company Number: 2005087660

PATIENT
  Age: 78 Year
  Sex: Female
  Weight: 77.1115 kg

DRUGS (4)
  1. CELEBREX [Suspect]
     Indication: OSTEOARTHRITIS
     Dosage: ORAL
     Route: 048
  2. CELEBREX [Suspect]
     Indication: RHEUMATOID ARTHRITIS
     Dosage: ORAL
     Route: 048
  3. PLAVIX [Concomitant]
  4. ASPIRIN [Concomitant]

REACTIONS (4)
  - ARTERIAL OCCLUSIVE DISEASE [None]
  - DRUG INEFFECTIVE [None]
  - PAIN [None]
  - POST PROCEDURAL HAEMORRHAGE [None]
